FAERS Safety Report 4434126-3 (Version None)
Quarter: 2004Q3

REPORT INFORMATION
  Report Type: 
  Country: None (occurrence: None)
  Receive Date: 20040825
  Receipt Date: 20040810
  Transmission Date: 20050211
  Serious: Yes (Life-Threatening)
  Sender: FDA-Public Use
  Company Number: 208331

PATIENT
  Sex: Male
  Weight: 62 kg

DRUGS (6)
  1. RITUXIMAB (RITUXIMAB) CONC FOR SOLUTION FOR INFUSION [Suspect]
     Indication: EXTRANODAL MARGINAL ZONE B-CELL LYMPHOMA (MALT TYPE)
     Dosage: 640 MG,  INTRAVENOUS
     Route: 042
     Dates: start: 20040301, end: 20040511
  2. CYCLOPHOSPHAMIDE [Suspect]
     Indication: EXTRANODAL MARGINAL ZONE B-CELL LYMPHOMA (MALT TYPE)
     Dosage: 1300 MG, INTRAVENOUS
     Route: 042
     Dates: start: 20040303, end: 20040517
  3. DOXORUBICIN (DOXYORUBICIN , DOXORUBUCIN HYDROCHLORIDE) [Suspect]
     Indication: EXTRANODAL MARGINAL ZONE B-CELL LYMPHOMA (MALT TYPE)
     Dosage: 80 MG , INTRAVENOUS
     Route: 042
     Dates: start: 20040303, end: 20040517
  4. VINCRISTINE [Suspect]
     Indication: EXTRANODAL MARGINAL ZONE B-CELL LYMPHOMA (MALT TYPE)
     Dosage: 2 MG, INTRAVENOUS
     Route: 042
     Dates: start: 20040303, end: 20040517
  5. PREDNISONE [Concomitant]
  6. CHLORPHENIRAMINE (CHLORPHENAMINE MALEATE) [Concomitant]

REACTIONS (5)
  - ALANINE AMINOTRANSFERASE INCREASED [None]
  - ASPARTATE AMINOTRANSFERASE INCREASED [None]
  - HEPATIC FUNCTION ABNORMAL [None]
  - HYPOXIA [None]
  - INTERSTITIAL LUNG DISEASE [None]
